FAERS Safety Report 7959732-0 (Version None)
Quarter: 2011Q4

REPORT INFORMATION
  Report Type: 
  Country: None (occurrence: None)
  Receive Date: 20111206
  Receipt Date: 20111130
  Transmission Date: 20120403
  Serious: Yes (Hospitalization)
  Sender: FDA-Public Use
  Company Number: US-GLAXOSMITHKLINE-A0956054A

PATIENT
  Age: 79 Year
  Sex: Female

DRUGS (14)
  1. PRILOSEC [Concomitant]
  2. ADVAIR DISKUS 100/50 [Suspect]
     Indication: ASTHMA
     Dosage: 1PUFF TWICE PER DAY
     Route: 055
     Dates: start: 20101101
  3. ALPRAZOLAM [Concomitant]
  4. ALBUTEROL [Concomitant]
  5. STOOL SOFTENER [Concomitant]
  6. TRIAMTERENE [Concomitant]
  7. AMITRIPTYLINE HCL [Concomitant]
  8. AMLODIPINE [Concomitant]
  9. PRAVASTATIN [Concomitant]
  10. PREDNISONE TAB [Concomitant]
  11. IRON [Concomitant]
  12. ASCORBIC ACID [Concomitant]
  13. CLONIDINE [Concomitant]
  14. GLIPIZIDE [Concomitant]

REACTIONS (3)
  - ASTHENIA [None]
  - EXPIRED DRUG ADMINISTERED [None]
  - DYSPNOEA [None]
